FAERS Safety Report 8341940-0 (Version None)
Quarter: 2012Q2

REPORT INFORMATION
  Report Type: 
  Country: None (occurrence: None)
  Receive Date: 20120507
  Receipt Date: 20120222
  Transmission Date: 20120825
  Serious: Yes (Hospitalization, Other)
  Sender: FDA-Public Use
  Company Number: NL-ROXANE LABORATORIES, INC.-2012-EU-01071GD

PATIENT
  Age: 77 Year
  Sex: Female

DRUGS (1)
  1. PREDNISONE [Suspect]
     Indication: MYCOSIS FUNGOIDES
     Dosage: 10 MG

REACTIONS (11)
  - HEADACHE [None]
  - VIITH NERVE PARALYSIS [None]
  - ENCEPHALITIS [None]
  - CRYPTOCOCCOSIS [None]
  - SYNCOPE [None]
  - SOMNOLENCE [None]
  - NAUSEA [None]
  - DISSEMINATED CRYPTOCOCCOSIS [None]
  - CRYPTOCOCCAL FUNGAEMIA [None]
  - SUBCUTANEOUS ABSCESS [None]
  - PYREXIA [None]
